FAERS Safety Report 9746029 (Version 2)
Quarter: 2013Q4

REPORT INFORMATION
  Report Type: Spontaneous
  Country: US (occurrence: US)
  Receive Date: 20131211
  Receipt Date: 20131211
  Transmission Date: 20140711
  Serious: Yes (Hospitalization)
  Sender: FDA-Public Use
  Company Number: US-LUNDBECK-DKLU1095734

PATIENT
  Age: 1 Year
  Sex: Male

DRUGS (5)
  1. SABRIL (FOR ORAL SOLUTION) [Suspect]
     Indication: INFANTILE SPASMS
     Dates: start: 20130924
  2. SABRIL (FOR ORAL SOLUTION) [Suspect]
     Indication: CONVULSION
  3. SABRIL (FOR ORAL SOLUTION) [Suspect]
     Route: 048
  4. COMBIVENT [Concomitant]
     Indication: PRODUCT USED FOR UNKNOWN INDICATION
  5. FLOVENT [Concomitant]
     Indication: PRODUCT USED FOR UNKNOWN INDICATION

REACTIONS (2)
  - Respiratory syncytial virus bronchiolitis [Recovering/Resolving]
  - Otitis media [Unknown]
